FAERS Safety Report 5380413-4 (Version None)
Quarter: 2007Q3

REPORT INFORMATION
  Report Type: 
  Country: None (occurrence: None)
  Receive Date: 20070706
  Receipt Date: 20070525
  Transmission Date: 20080115
  Serious: No
  Sender: FDA-Public Use
  Company Number: A0653044A

PATIENT
  Age: 46 Year
  Sex: Female

DRUGS (14)
  1. TYKERB [Suspect]
     Indication: BREAST CANCER
     Dosage: 5TAB PER DAY
     Route: 048
     Dates: start: 20070523
  2. CIPRO [Concomitant]
  3. BACTRIM [Concomitant]
  4. RIFAMPIN [Concomitant]
  5. DIFLUCAN [Concomitant]
  6. ATARAX [Concomitant]
  7. LASIX [Concomitant]
  8. ATENOLOL [Concomitant]
  9. WARFARIN SODIUM [Concomitant]
  10. MAGNESIUM OXIDE [Concomitant]
  11. DEXAMETHASONE [Concomitant]
  12. REQUIP [Concomitant]
  13. PAROXETINE HCL [Concomitant]
  14. OXYCODONE HCL AND ACETAMINOPHEN [Concomitant]

REACTIONS (2)
  - CHEST DISCOMFORT [None]
  - PAIN [None]
